FAERS Safety Report 19881879 (Version 5)
Quarter: 2023Q2

REPORT INFORMATION
  Report Type: Spontaneous
  Country: JP (occurrence: JP)
  Receive Date: 20210924
  Receipt Date: 20230628
  Transmission Date: 20230722
  Serious: Yes (Life-Threatening, Hospitalization, Other)
  Sender: FDA-Public Use
  Company Number: JP-BRISTOL-MYERS SQUIBB COMPANY-BMS-2021-095491

PATIENT

DRUGS (2)
  1. YERVOY [Suspect]
     Active Substance: IPILIMUMAB
     Indication: Metastatic renal cell carcinoma
     Dosage: 1 MILLIGRAM/KILOGRAM, Q3WK
     Route: 041
     Dates: start: 202106
  2. OPDIVO [Suspect]
     Active Substance: NIVOLUMAB
     Indication: Metastatic renal cell carcinoma
     Dosage: 240 MILLIGRAM, Q3WK
     Route: 041
     Dates: start: 202106

REACTIONS (6)
  - Immune-mediated enterocolitis [Not Recovered/Not Resolved]
  - Cytomegalovirus enterocolitis [Unknown]
  - Ascites [Unknown]
  - Bacterial infection [Unknown]
  - Pleural effusion [Unknown]
  - Hypoalbuminaemia [Unknown]
